FAERS Safety Report 5039581-6 (Version None)
Quarter: 2006Q2

REPORT INFORMATION
  Report Type: 
  Country: None (occurrence: None)
  Receive Date: 20060601
  Receipt Date: 20060103
  Transmission Date: 20061013
  Serious: No
  Sender: FDA-Public Use
  Company Number: 2006PV006514

PATIENT
  Age: 44 Year
  Sex: Male
  Weight: 170.0989 kg

DRUGS (6)
  1. BYETTA [Suspect]
     Indication: DIABETES MELLITUS NON-INSULIN-DEPENDENT
     Dosage: 10 MCG;BID;SC
     Route: 058
     Dates: start: 20051202
  2. GLUCOPHAGE [Concomitant]
  3. ACTOS [Concomitant]
  4. LANTUS [Concomitant]
  5. DIABETICINE [Concomitant]
  6. ENHANCESULIN [Concomitant]

REACTIONS (2)
  - ABDOMINAL DISTENSION [None]
  - DECREASED APPETITE [None]
